FAERS Safety Report 6734704-2 (Version None)
Quarter: 2010Q2

REPORT INFORMATION
  Report Type: 
  Country: None (occurrence: None)
  Receive Date: 20100519
  Receipt Date: 20100519
  Transmission Date: 20101027
  Serious: No
  Sender: FDA-Public Use
  Company Number: None

PATIENT
  Age: 39 Year
  Sex: Female
  Weight: 60.782 kg

DRUGS (1)
  1. MIRENA [Suspect]
     Indication: CONTRACEPTION
     Dates: start: 20081111

REACTIONS (7)
  - ABDOMINAL DISTENSION [None]
  - ALOPECIA [None]
  - FATIGUE [None]
  - HEART RATE INCREASED [None]
  - PAIN IN EXTREMITY [None]
  - PANIC ATTACK [None]
  - WEIGHT INCREASED [None]
